FAERS Safety Report 13176994 (Version 2)
Quarter: 2017Q3

REPORT INFORMATION
  Report Type: Report from Study
  Country: US (occurrence: US)
  Receive Date: 20170201
  Receipt Date: 20170731
  Transmission Date: 20171127
  Serious: No
  Sender: FDA-Public Use
  Company Number: US-EXELIXIS-CABO-16006831

PATIENT
  Sex: Male

DRUGS (9)
  1. HYDROCODONE [Concomitant]
     Active Substance: HYDROCODONE
  2. CABOMETYX [Suspect]
     Active Substance: CABOZANTINIB S-MALATE
     Indication: RENAL CANCER
     Dosage: 60 MG, MWF
     Route: 048
     Dates: start: 20160624
  3. VALSARTAN. [Concomitant]
     Active Substance: VALSARTAN
  4. VITAMIN D3 [Concomitant]
     Active Substance: CHOLECALCIFEROL
  5. LANSOPRAZOLE. [Concomitant]
     Active Substance: LANSOPRAZOLE
  6. FENTANYL. [Concomitant]
     Active Substance: FENTANYL
  7. ONDANSETRON [Concomitant]
     Active Substance: ONDANSETRON
  8. CARVEDILOL. [Concomitant]
     Active Substance: CARVEDILOL
  9. IRON [Concomitant]
     Active Substance: IRON

REACTIONS (1)
  - Blister [Unknown]
